FAERS Safety Report 5257340-6 (Version None)
Quarter: 2007Q1

REPORT INFORMATION
  Report Type: 
  Country: None (occurrence: None)
  Receive Date: 20061214
  Receipt Date: 20060918
  Transmission Date: 20070707
  Serious: Yes (Hospitalization, Other)
  Sender: FDA-Public Use
  Company Number: 30709

PATIENT
  Age: 44 Year
  Sex: Female

DRUGS (3)
  1. VINORELBINE TARTRATE INJ. 10MG/ML - BEDFORD LABS, INC. [Suspect]
     Indication: BREAST CANCER METASTATIC
     Dosage: 20 MG/WEEKLY
     Dates: start: 20060804, end: 20060811
  2. HEPARIN [Concomitant]
  3. NAPROXEN [Concomitant]

REACTIONS (1)
  - FEBRILE NEUTROPENIA [None]
